FAERS Safety Report 7171076-6 (Version None)
Quarter: 2010Q4

REPORT INFORMATION
  Report Type: 
  Country: None (occurrence: None)
  Receive Date: 20101203
  Receipt Date: 20101102
  Transmission Date: 20110411
  Serious: Yes (Death)
  Sender: FDA-Public Use
  Company Number: LEO-2010-01067

PATIENT

DRUGS (2)
  1. INNOHEP [Suspect]
     Indication: DRUG EXPOSURE DURING PREGNANCY
     Dosage: TRANSPLACENTAL
     Route: 064
  2. ASPIRIN [Concomitant]

REACTIONS (4)
  - AORTIC THROMBOSIS [None]
  - CAESAREAN SECTION [None]
  - CARDIAC ARREST [None]
  - DRUG EXPOSURE DURING PREGNANCY [None]
